FAERS Safety Report 23123305 (Version 1)
Quarter: 2023Q4

REPORT INFORMATION
  Report Type: Spontaneous
  Country: US (occurrence: US)
  Receive Date: 20231030
  Receipt Date: 20231030
  Transmission Date: 20240109
  Serious: No
  Sender: FDA-Public Use
  Company Number: US-GSK-US2023AMR146544

PATIENT
  Sex: Female

DRUGS (2)
  1. BENLYSTA [Suspect]
     Active Substance: BELIMUMAB
     Indication: Systemic lupus erythematosus
     Dosage: 811 MG,OVER 1 HOUR EVERY 4 WEEKS,120MG/400MG
     Route: 042
  2. BENLYSTA [Suspect]
     Active Substance: BELIMUMAB
     Indication: Systemic lupus erythematosus
     Dosage: 811 MG,OVER 1 HOUR EVERY 4 WEEKS,120MG/400MG
     Route: 042

REACTIONS (2)
  - Nightmare [Unknown]
  - Product dose omission issue [Unknown]
